FAERS Safety Report 23515059 (Version 2)
Quarter: 2024Q1

REPORT INFORMATION
  Report Type: Spontaneous
  Country: CH (occurrence: CH)
  Receive Date: 20240212
  Receipt Date: 20240319
  Transmission Date: 20240410
  Serious: Yes (Life-Threatening, Hospitalization, Other)
  Sender: FDA-Public Use
  Company Number: CH-BAYER-2024A021714

PATIENT
  Age: 16 Year
  Sex: Female
  Weight: 42 kg

DRUGS (2)
  1. XARELTO [Suspect]
     Active Substance: RIVAROXABAN
     Indication: Thrombosis prophylaxis
     Dosage: 10 MG, QD
     Route: 048
     Dates: start: 20240118, end: 20240201
  2. XARELTO [Suspect]
     Active Substance: RIVAROXABAN
     Indication: Lower limb fracture

REACTIONS (14)
  - Heavy menstrual bleeding [Recovered/Resolved]
  - Haemoglobin decreased [Unknown]
  - Coagulation time abnormal [Unknown]
  - Tachycardia [Unknown]
  - Anaemia [Unknown]
  - Dizziness [Unknown]
  - Fatigue [Recovered/Resolved]
  - Nausea [Unknown]
  - Vomiting [Unknown]
  - Weight decreased [Unknown]
  - Decreased appetite [Unknown]
  - Blood pressure decreased [Unknown]
  - Retrograde menstruation [Unknown]
  - Pelvic fluid collection [Unknown]

NARRATIVE: CASE EVENT DATE: 20240101
